FAERS Safety Report 25980527 (Version 1)
Quarter: 2025Q4

REPORT INFORMATION
  Report Type: Spontaneous
  Country: US (occurrence: None)
  Receive Date: 20251030
  Receipt Date: 20251030
  Transmission Date: 20260117
  Serious: Yes (Other)
  Sender: FDA-CTU
  Company Number: None

PATIENT
  Age: 21 Year
  Sex: Female
  Weight: 43.3 kg

DRUGS (2)
  1. FASENRA [Suspect]
     Active Substance: BENRALIZUMAB
     Indication: Asthma
     Dates: start: 20250224
  2. FASENRA [Suspect]
     Active Substance: BENRALIZUMAB
     Indication: Eosinophilia

REACTIONS (3)
  - Asthma [None]
  - Inappropriate schedule of product administration [None]
  - Drug specific antibody present [None]

NARRATIVE: CASE EVENT DATE: 20250919
